FAERS Safety Report 26073963 (Version 1)
Quarter: 2025Q4

REPORT INFORMATION
  Report Type: Spontaneous
  Country: EU (occurrence: EU)
  Receive Date: 20251121
  Receipt Date: 20251121
  Transmission Date: 20260117
  Serious: Yes (Hospitalization)
  Sender: QUAGEN PHARMACEUTICALS
  Company Number: EU-QUAGEN-2025QUALIT00808

PATIENT
  Age: 11 Year
  Sex: Male

DRUGS (2)
  1. LEVETIRACETAM [Suspect]
     Active Substance: LEVETIRACETAM
     Indication: Seizure prophylaxis
     Dosage: DAY 3, LOADING DOSE OVER 30 MINUTES, DILUTED IN SODIUM CHLORIDE 0.9%
     Route: 042
  2. LEVETIRACETAM [Suspect]
     Active Substance: LEVETIRACETAM
     Dosage: DAY 4, MAINTENANCE DOSE OVER 30 MINUTES, DILUTED IN SODIUM CHLORIDE 0.9%
     Route: 042

REACTIONS (1)
  - Metabolic acidosis [Recovered/Resolved]
